FAERS Safety Report 8195890-3 (Version None)
Quarter: 2012Q1

REPORT INFORMATION
  Report Type: 
  Country: None (occurrence: None)
  Receive Date: 20120308
  Receipt Date: 20120229
  Transmission Date: 20120608
  Serious: Yes (Hospitalization)
  Sender: FDA-Public Use
  Company Number: US-ASTRAZENECA-2012SE14017

PATIENT
  Age: 47 Year
  Sex: Male
  Weight: 163.3 kg

DRUGS (6)
  1. LASIX [Concomitant]
     Indication: FLUID RETENTION
     Route: 048
     Dates: start: 20110101
  2. NEXIUM [Suspect]
     Indication: GASTROOESOPHAGEAL REFLUX DISEASE
     Route: 048
  3. NEXIUM [Suspect]
     Route: 048
  4. PRILOSEC [Suspect]
     Indication: GASTROOESOPHAGEAL REFLUX DISEASE
     Route: 048
  5. POTASSIUM [Concomitant]
     Indication: HYPOKALAEMIA
     Route: 048
     Dates: start: 20110101
  6. NORVASC [Concomitant]
     Indication: HYPERTENSION
     Route: 048
     Dates: start: 19980101

REACTIONS (6)
  - DRUG INEFFECTIVE [None]
  - LYME DISEASE [None]
  - MEMORY IMPAIRMENT [None]
  - PAIN [None]
  - DRUG DOSE OMISSION [None]
  - ARTHRITIS [None]
